FAERS Safety Report 16613981 (Version 1)
Quarter: 2019Q3

REPORT INFORMATION
  Report Type: Spontaneous
  Country: JP (occurrence: JP)
  Receive Date: 20190723
  Receipt Date: 20190723
  Transmission Date: 20191004
  Serious: Yes (Hospitalization)
  Sender: FDA-Public Use
  Company Number: JP-ROCHE-71283

PATIENT
  Age: 17 Year
  Sex: Male
  Weight: 54 kg

DRUGS (5)
  1. BUPIVACAINE HCL [Concomitant]
     Active Substance: BUPIVACAINE HYDROCHLORIDE
     Indication: ANAESTHESIA
     Route: 042
     Dates: start: 19960305, end: 19960305
  2. SILECE [Concomitant]
     Active Substance: FLUNITRAZEPAM
     Indication: ANAESTHESIA
     Route: 030
     Dates: start: 19960305, end: 19960305
  3. DORMICUM (INJ) [Suspect]
     Active Substance: MIDAZOLAM HYDROCHLORIDE
     Indication: LOCAL ANAESTHESIA
     Route: 042
     Dates: start: 19960305, end: 19960305
  4. MEPIVACAINE HCL [Concomitant]
     Active Substance: MEPIVACAINE HYDROCHLORIDE
     Indication: ANAESTHESIA
     Route: 042
     Dates: start: 19960305, end: 19960305
  5. ANEXATE [Suspect]
     Active Substance: FLUMAZENIL
     Indication: REVERSAL OF SEDATION
     Route: 042
     Dates: start: 19960305, end: 19960305

REACTIONS (1)
  - Opisthotonus [Recovered/Resolved]

NARRATIVE: CASE EVENT DATE: 19960305
